FAERS Safety Report 4897931-5 (Version None)
Quarter: 2006Q1

REPORT INFORMATION
  Report Type: 
  Country: None (occurrence: None)
  Receive Date: 20060130
  Receipt Date: 20060112
  Transmission Date: 20060701
  Serious: Yes (Other)
  Sender: FDA-Public Use
  Company Number: HQWYE321413JAN06

PATIENT
  Age: 59 Year
  Sex: Female

DRUGS (9)
  1. ENBREL [Suspect]
     Indication: RHEUMATOID ARTHRITIS
     Dosage: 25 MG, 2 IN 1 WEEKS, SC
     Route: 058
     Dates: start: 20040801
  2. METHYLPREDNISOLONE [Suspect]
     Dosage: 8 MG, 1 IN 1 DAYS
  3. FOLIC ACID [Concomitant]
  4. DICLOFENAC (DICLOFENAC) [Concomitant]
  5. CALCIUM LACTOGLUCONATE (CALCIUM LACTOGLUCONATE) [Concomitant]
  6. COLECALCIFEROL (COLECALCIFEROL) [Concomitant]
  7. ALENDRONATE SODIUM [Concomitant]
  8. UNSPECIFIED ANTIHYPERTENSIVE AGENT (UNSPECIFIED ANTIHYPERTENSIVE AGENT [Concomitant]
  9. UNSPECIFIED GASTROINTESTINAL AGENT (UNSPECIFIED GASTROINTESTINAL AGENT [Concomitant]

REACTIONS (3)
  - OSTEOMALACIA [None]
  - PELVIC FRACTURE [None]
  - RENAL IMPAIRMENT [None]
